FAERS Safety Report 8903274 (Version 1)
Quarter: 2012Q4

REPORT INFORMATION
  Report Type: 
  Country: US (occurrence: US)
  Receive Date: 20121113
  Receipt Date: 20121113
  Transmission Date: 20130627
  Serious: No
  Sender: FDA-Public Use
  Company Number: US-ASTRAZENECA-2012SE82232

PATIENT
  Sex: Female

DRUGS (11)
  1. CRESTOR [Suspect]
     Route: 048
  2. AMLODAPINE [Concomitant]
  3. LASIX [Concomitant]
  4. ALTASE [Concomitant]
  5. ZETIA [Concomitant]
  6. COUMADIN [Concomitant]
  7. ASA [Concomitant]
  8. LAVASA [Concomitant]
  9. LANTUS INSULIN [Concomitant]
  10. NOVALOG INSULIN [Concomitant]
  11. CORAG [Concomitant]
     Indication: CARDIAC DISORDER

REACTIONS (2)
  - Arthralgia [Unknown]
  - Spinal pain [Unknown]
